FAERS Safety Report 24014390 (Version 1)
Quarter: 2024Q2

REPORT INFORMATION
  Report Type: Spontaneous
  Country: US (occurrence: US)
  Receive Date: 20240626
  Receipt Date: 20240626
  Transmission Date: 20240716
  Serious: Yes (Life-Threatening, Hospitalization)
  Sender: FDA-Public Use
  Company Number: US-MYLANLABS-2024M1057621

PATIENT
  Age: 62 Year
  Sex: Male

DRUGS (3)
  1. FENTANYL [Suspect]
     Active Substance: FENTANYL\FENTANYL CITRATE
     Indication: Sedation
     Dosage: 175 MICROGRAM, QH (INFUSION)
     Route: 065
  2. FENTANYL [Suspect]
     Active Substance: FENTANYL\FENTANYL CITRATE
     Dosage: 50 MICROGRAM, QH (INFUSION)
     Route: 065
  3. PROPOFOL [Concomitant]
     Active Substance: PROPOFOL
     Indication: Sedation
     Dosage: 40 MICROGRAM/KILOGRAM, QMINUTE
     Route: 065

REACTIONS (2)
  - Chest wall rigidity [Recovered/Resolved]
  - Muscle rigidity [Recovered/Resolved]
